FAERS Safety Report 14420676 (Version 1)
Quarter: 2018Q1

REPORT INFORMATION
  Report Type: Spontaneous
  Country: US (occurrence: US)
  Receive Date: 20180122
  Receipt Date: 20180122
  Transmission Date: 20180509
  Serious: No
  Sender: FDA-Public Use
  Company Number: US-ROCHE-1933434

PATIENT
  Age: 35 Year
  Sex: Female

DRUGS (11)
  1. GABAPENTIN. [Suspect]
     Active Substance: GABAPENTIN
     Indication: DIAPHRAGMATIC SPASM
     Route: 065
  2. BACLOFEN. [Suspect]
     Active Substance: BACLOFEN
     Indication: DIAPHRAGMATIC SPASM
     Route: 065
  3. CLONAZEPAM. [Suspect]
     Active Substance: CLONAZEPAM
     Indication: DIAPHRAGMATIC SPASM
     Route: 065
  4. MYCOPHENOLIC ACID. [Suspect]
     Active Substance: MYCOPHENOLIC ACID
     Indication: DIAPHRAGMATIC SPASM
     Route: 065
  5. CYCLOBENZAPRINE. [Suspect]
     Active Substance: CYCLOBENZAPRINE
     Indication: DIAPHRAGMATIC SPASM
     Route: 065
  6. LORAZEPAM. [Suspect]
     Active Substance: LORAZEPAM
     Indication: DIAPHRAGMATIC SPASM
     Route: 065
  7. PLASMAPHERESIS [Suspect]
     Active Substance: UNSPECIFIED INGREDIENT
     Indication: DIAPHRAGMATIC SPASM
     Route: 065
  8. RITUXIMAB. [Suspect]
     Active Substance: RITUXIMAB
     Indication: DIAPHRAGMATIC SPASM
     Route: 065
  9. DIAZEPAM. [Suspect]
     Active Substance: DIAZEPAM
     Indication: DIAPHRAGMATIC SPASM
     Route: 065
  10. LEVETIRACETAM. [Suspect]
     Active Substance: LEVETIRACETAM
     Indication: DIAPHRAGMATIC SPASM
     Route: 065
  11. TOPIRAMATE. [Suspect]
     Active Substance: TOPIRAMATE
     Indication: DIAPHRAGMATIC SPASM
     Route: 065

REACTIONS (4)
  - Drug ineffective [Unknown]
  - Hypersensitivity [Unknown]
  - Rash [Unknown]
  - Nausea [Unknown]
